FAERS Safety Report 19244549 (Version 1)
Quarter: 2021Q2

REPORT INFORMATION
  Report Type: Spontaneous
  Country: US (occurrence: US)
  Receive Date: 20210511
  Receipt Date: 20210511
  Transmission Date: 20210717
  Serious: Yes (Hospitalization, Other)
  Sender: FDA-Public Use
  Company Number: NVSC2021US098298

PATIENT
  Age: 65 Year
  Sex: Female

DRUGS (1)
  1. ENTRESTO [Suspect]
     Active Substance: SACUBITRIL\VALSARTAN
     Indication: CARDIAC FAILURE CONGESTIVE
     Dosage: 50 MG, BID (24/26 MG)
     Route: 048
     Dates: start: 202104, end: 202104

REACTIONS (4)
  - Cardiogenic shock [Recovered/Resolved]
  - Throat tightness [Recovered/Resolved]
  - Angioedema [Recovered/Resolved]
  - Aortic valve disease [Recovered/Resolved]
